FAERS Safety Report 9107293 (Version 1)
Quarter: 2013Q1

REPORT INFORMATION
  Report Type: Report from Study
  Country: US (occurrence: US)
  Receive Date: 20130221
  Receipt Date: 20130221
  Transmission Date: 20140127
  Serious: Yes (Hospitalization)
  Sender: FDA-Public Use
  Company Number: US-BRISTOL-MYERS SQUIBB COMPANY-17289471

PATIENT
  Age: 66 Year
  Sex: Male
  Weight: 98.8 kg

DRUGS (2)
  1. IPILIMUMAB [Suspect]
     Indication: NON-HODGKIN^S LYMPHOMA
     Dosage: LAST DOSE: 20DEC12.TOTAL 3230MG ;4WEEKS:821MG ON 20DEC12?296MG
     Route: 042
     Dates: start: 20121129
  2. RITUXIMAB [Suspect]
     Indication: NON-HODGKIN^S LYMPHOMA
     Dosage: LAST DOSE: 20DEC12.803MG ON 1,8 AND 15.821MG ON 20DEC12.?821 MG
     Route: 042
     Dates: start: 20121129

REACTIONS (2)
  - Diarrhoea [Recovering/Resolving]
  - Febrile neutropenia [Unknown]
